FAERS Safety Report 18452533 (Version 1)
Quarter: 2020Q4

REPORT INFORMATION
  Report Type: Spontaneous
  Country: NZ (occurrence: NZ)
  Receive Date: 20201102
  Receipt Date: 20201102
  Transmission Date: 20210114
  Serious: Yes (Other)
  Sender: FDA-Public Use
  Company Number: NZ-GUERBET-NZ-20200020

PATIENT
  Age: 48 Year
  Sex: Male
  Weight: 71 kg

DRUGS (2)
  1. DOTAREM [Suspect]
     Active Substance: GADOTERATE MEGLUMINE
     Indication: MAGNETIC RESONANCE IMAGING BRAIN
     Route: 042
     Dates: start: 20200820, end: 20200820
  2. DOTAREM [Suspect]
     Active Substance: GADOTERATE MEGLUMINE
     Indication: MAGNETIC RESONANCE IMAGING

REACTIONS (13)
  - Muscle spasms [Recovering/Resolving]
  - Injection site pruritus [Recovered/Resolved]
  - Abdominal tenderness [Recovered/Resolved]
  - Insomnia [Unknown]
  - Dysarthria [Recovered/Resolved]
  - Feeling abnormal [Recovered/Resolved]
  - Quality of life decreased [Unknown]
  - Skin hypertrophy [Unknown]
  - Dyspepsia [Recovered/Resolved]
  - Muscle twitching [Recovering/Resolving]
  - Neuropathy peripheral [Unknown]
  - Skin burning sensation [Unknown]
  - Abdominal distension [Recovered/Resolved]

NARRATIVE: CASE EVENT DATE: 20200820
